FAERS Safety Report 4969534-5 (Version None)
Quarter: 2006Q2

REPORT INFORMATION
  Report Type: 
  Country: None (occurrence: None)
  Receive Date: 20060406
  Receipt Date: 20060324
  Transmission Date: 20061013
  Serious: Yes (Hospitalization)
  Sender: FDA-Public Use
  Company Number: HQWYE544327MAR06

PATIENT
  Age: 79 Year
  Sex: Female
  Weight: 96.25 kg

DRUGS (5)
  1. PREMARIN [Suspect]
     Indication: HORMONE REPLACEMENT THERAPY
     Dosage: 1.25 MG 1X PER 1 DAY; ORAL
     Route: 048
     Dates: start: 19660101, end: 20060115
  2. PROTONIX [Concomitant]
  3. VITAMIN D [Concomitant]
  4. ASCORBIC ACID [Concomitant]
  5. LEVOXYL [Concomitant]

REACTIONS (7)
  - ABDOMINAL PAIN [None]
  - ELECTROCARDIOGRAM T WAVE ABNORMAL [None]
  - HOT FLUSH [None]
  - HYPERHIDROSIS [None]
  - MYOCARDIAL INFARCTION [None]
  - SPLEEN DISORDER [None]
  - SPLENIC VEIN THROMBOSIS [None]
